FAERS Safety Report 18550608 (Version 1)
Quarter: 2020Q4

REPORT INFORMATION
  Report Type: Report from Study
  Country: None (occurrence: US)
  Receive Date: 20201126
  Receipt Date: 20201126
  Transmission Date: 20210114
  Serious: Yes (Other)
  Sender: FDA-Public Use
  Company Number: US-ABBVIE-20K-163-3663599-00

PATIENT
  Sex: Female

DRUGS (1)
  1. HUMIRA [Suspect]
     Active Substance: ADALIMUMAB
     Indication: CROHN^S DISEASE
     Route: 058

REACTIONS (12)
  - Endometrial cancer [Unknown]
  - Crohn^s disease [Unknown]
  - Gastrooesophageal reflux disease [Unknown]
  - Parotidectomy [Unknown]
  - Cholecystectomy [Unknown]
  - Gingival recession [Unknown]
  - Abdominal distension [Unknown]
  - Vomiting [Unknown]
  - Alopecia [Unknown]
  - Hip arthroplasty [Unknown]
  - Pain [Unknown]
  - Diarrhoea [Unknown]
